FAERS Safety Report 7385264-7 (Version None)
Quarter: 2011Q1

REPORT INFORMATION
  Report Type: 
  Country: None (occurrence: None)
  Receive Date: 20110330
  Receipt Date: 20100302
  Transmission Date: 20110831
  Serious: No
  Sender: FDA-Public Use
  Company Number: US-MYLANLABS-2010S1002427

PATIENT
  Age: 46 Year
  Sex: Male
  Weight: 75.75 kg

DRUGS (6)
  1. XANAX XR [Concomitant]
  2. EMSAM [Suspect]
     Indication: DEPRESSION
     Dosage: CHANGED PATCHES QD
     Route: 062
     Dates: start: 20100101, end: 20100201
  3. SUBUTEX [Concomitant]
     Indication: PAIN
  4. EMSAM [Suspect]
     Indication: AGITATION
     Dosage: CHANGED PATCHES QD
     Route: 062
     Dates: start: 20100101, end: 20100201
  5. EMSAM [Suspect]
     Indication: ASTHENIA
     Dosage: CHANGED PATCHES QD
     Route: 062
     Dates: start: 20100101, end: 20100201
  6. EMSAM [Suspect]
     Dosage: CHANGED PATCHES QD
     Route: 062
     Dates: start: 20100101, end: 20100201

REACTIONS (6)
  - NAUSEA [None]
  - PALPITATIONS [None]
  - DECREASED APPETITE [None]
  - HYPERHIDROSIS [None]
  - WRONG TECHNIQUE IN DRUG USAGE PROCESS [None]
  - AGITATION [None]
